FAERS Safety Report 15969252 (Version 2)
Quarter: 2021Q1

REPORT INFORMATION
  Report Type: Spontaneous
  Country: US (occurrence: US)
  Receive Date: 20190215
  Receipt Date: 20210112
  Transmission Date: 20210419
  Serious: Yes (Hospitalization)
  Sender: FDA-Public Use
  Company Number: US-JNJFOC-20190202255

PATIENT
  Age: 69 Year
  Sex: Male

DRUGS (4)
  1. ASPRIN [Suspect]
     Active Substance: ASPIRIN
     Indication: PRODUCT USED FOR UNKNOWN INDICATION
     Route: 048
  2. XARELTO [Suspect]
     Active Substance: RIVAROXABAN
     Indication: ATRIAL FIBRILLATION
     Route: 048
     Dates: start: 20160214, end: 20160405
  3. XARELTO [Suspect]
     Active Substance: RIVAROXABAN
     Indication: CEREBROVASCULAR ACCIDENT PROPHYLAXIS
  4. XARELTO [Suspect]
     Active Substance: RIVAROXABAN
     Indication: ATRIAL FLUTTER

REACTIONS (1)
  - Upper gastrointestinal haemorrhage [Recovering/Resolving]

NARRATIVE: CASE EVENT DATE: 20160225
